FAERS Safety Report 5213052-6 (Version None)
Quarter: 2007Q1

REPORT INFORMATION
  Report Type: 
  Country: None (occurrence: None)
  Receive Date: 20070117
  Receipt Date: 20070102
  Transmission Date: 20070707
  Serious: Yes (Death, Other)
  Sender: FDA-Public Use
  Company Number: RENA-12010

PATIENT
  Age: 67 Year
  Sex: Female

DRUGS (9)
  1. RENAGEL [Suspect]
     Indication: HYPERPHOSPHATAEMIA
     Dosage: 1.6 G TID PO
     Route: 048
     Dates: start: 20060411, end: 20060902
  2. SODIUM BICARBONATE [Concomitant]
  3. REPLIVA [Concomitant]
  4. K-DUR 10 [Concomitant]
  5. HECTOROL [Concomitant]
  6. ASPIRIN [Concomitant]
  7. DIOVAN [Concomitant]
  8. COREG [Concomitant]
  9. EPOGEN [Concomitant]

REACTIONS (5)
  - AORTIC VALVE REPLACEMENT [None]
  - CORONARY ARTERY BYPASS [None]
  - GANGRENE [None]
  - PERIPHERAL VASCULAR DISORDER [None]
  - SEPSIS [None]
